FAERS Safety Report 5593734-7 (Version None)
Quarter: 2007Q4

REPORT INFORMATION
  Report Type: 
  Country: None (occurrence: None)
  Receive Date: 20071218
  Receipt Date: 20070712
  Transmission Date: 20080405
  Serious: Yes (Hospitalization, Other)
  Sender: FDA-Public Use
  Company Number: 2006151733

PATIENT
  Age: 64 Year
  Sex: Male

DRUGS (5)
  1. BEXTRA [Suspect]
     Indication: ARTHRITIS
     Dosage: 20 MG (20 MG,1 IN 1 D)
     Dates: start: 20041001
  2. BEXTRA [Suspect]
     Indication: BACK PAIN
     Dosage: 20 MG (20 MG,1 IN 1 D)
     Dates: start: 20041001
  3. VIOXX [Suspect]
     Indication: ARTHRITIS
     Dosage: 75 MG (1 IN 1 D)
     Dates: start: 19990101, end: 20041001
  4. VIOXX [Suspect]
     Indication: BACK PAIN
     Dosage: 75 MG (1 IN 1 D)
     Dates: start: 19990101, end: 20041001
  5. LIPITOR [Concomitant]

REACTIONS (5)
  - ANXIETY [None]
  - BACK PAIN [None]
  - CHEST PAIN [None]
  - DEPRESSION [None]
  - MYOCARDIAL INFARCTION [None]
